FAERS Safety Report 18062698 (Version 2)
Quarter: 2020Q3

REPORT INFORMATION
  Report Type: Spontaneous
  Country: TH (occurrence: TH)
  Receive Date: 20200723
  Receipt Date: 20200806
  Transmission Date: 20201103
  Serious: Yes (Other)
  Sender: FDA-Public Use
  Company Number: TH-009507513-2007THA007797

PATIENT
  Age: 19 Year
  Sex: Female

DRUGS (3)
  1. ETONOGESTREL IMPLANT? UNKNOWN [Suspect]
     Active Substance: ETONOGESTREL
     Dosage: 1 DOSAGE FORM (1 IMPLANT)
     Route: 059
     Dates: start: 2019
  2. IMPLANON NXT [Suspect]
     Active Substance: ETONOGESTREL
     Dosage: 1 DOSAGE FORM (1 IMPLANT ON RIGHT ARM)
     Route: 059
     Dates: start: 202007
  3. ETONOGESTREL IMPLANT? UNKNOWN [Suspect]
     Active Substance: ETONOGESTREL
     Indication: CONTRACEPTION
     Dosage: 1 DOSAGE FORM (1 IMPLANT IN LEFT ARM)
     Route: 059
     Dates: start: 20170225, end: 2019

REACTIONS (6)
  - Wrong technique in product usage process [Unknown]
  - Pregnancy with implant contraceptive [Recovered/Resolved]
  - Unintended pregnancy [Recovered/Resolved]
  - Pain in extremity [Recovering/Resolving]
  - Complication associated with device [Not Recovered/Not Resolved]
  - Overdose [Unknown]

NARRATIVE: CASE EVENT DATE: 2017
